FAERS Safety Report 17042326 (Version 1)
Quarter: 2019Q4

REPORT INFORMATION
  Report Type: Spontaneous
  Country: US (occurrence: US)
  Receive Date: 20191118
  Receipt Date: 20191118
  Transmission Date: 20200122
  Serious: No
  Sender: FDA-Public Use
  Company Number: US-BAYER-2019-205688

PATIENT
  Age: 37 Year
  Sex: Female
  Weight: 117.93 kg

DRUGS (3)
  1. CLARITIN [Suspect]
     Active Substance: LORATADINE
     Indication: PAIN
     Dosage: 10 MG
     Route: 048
     Dates: start: 20191001
  2. NIVESTYM [Suspect]
     Active Substance: FILGRASTIM-AAFI
     Indication: WHITE BLOOD CELL DISORDER
     Dosage: 1 DF, QD
     Dates: start: 20191105
  3. TUMS [CALCIUM CARBONATE;MAGNESIUM CARBONATE] [Concomitant]
     Indication: GASTROINTESTINAL DISORDER
     Dosage: UNK
     Route: 048
     Dates: start: 20191022

REACTIONS (4)
  - Pain [Not Recovered/Not Resolved]
  - Speech disorder [Unknown]
  - Hypoaesthesia [Not Recovered/Not Resolved]
  - Product use in unapproved indication [None]

NARRATIVE: CASE EVENT DATE: 20191001
